FAERS Safety Report 11886074 (Version 1)
Quarter: 2016Q1

REPORT INFORMATION
  Report Type: Spontaneous
  Country: US (occurrence: US)
  Receive Date: 20160104
  Receipt Date: 20160104
  Transmission Date: 20160526
  Serious: No
  Sender: FDA-Public Use
  Company Number: US-PFIZER INC-2015436779

PATIENT
  Age: 61 Year
  Sex: Male
  Weight: 122.45 kg

DRUGS (2)
  1. LYRICA [Suspect]
     Active Substance: PREGABALIN
     Indication: SPINAL CORD INJURY
     Dosage: 100 MG, UNK
  2. LYRICA [Suspect]
     Active Substance: PREGABALIN
     Indication: DIABETIC NEPHROPATHY
     Dosage: 75 MG, UNK

REACTIONS (5)
  - Swelling [Unknown]
  - Drug ineffective [Unknown]
  - Pruritus [Unknown]
  - Blood potassium decreased [Unknown]
  - Rash [Unknown]
